FAERS Safety Report 6579208-5 (Version None)
Quarter: 2010Q1

REPORT INFORMATION
  Report Type: 
  Country: None (occurrence: None)
  Receive Date: 20100212
  Receipt Date: 20100201
  Transmission Date: 20100710
  Serious: Yes (Hospitalization, Other)
  Sender: FDA-Public Use
  Company Number: US-TYCO HEALTHCARE/MALLINCKRODT-T201000540

PATIENT
  Age: 16 Year
  Sex: Male

DRUGS (14)
  1. FLUOXETINE [Suspect]
     Indication: ANXIETY
     Dosage: 50 MG, QD
     Route: 048
  2. PIMOZIDE [Suspect]
     Dosage: 3 MG DAILY
  3. FLUPHENAZINE [Suspect]
     Dosage: 1 MG QAM AND 3 MG QPM
  4. CLONAZEPAM [Suspect]
     Dosage: .05 MG BID-TID
  5. RISPERIDONE [Suspect]
     Dosage: 1 MG BID
  6. TETRABENAZINE [Suspect]
     Dosage: 37.5 MG QD
  7. TOPIRAMATE [Suspect]
     Dosage: 75 MG BID
  8. ZIPRASIDONE HCL [Concomitant]
     Dosage: UNK
  9. ZIPRASIDONE HCL [Concomitant]
     Dosage: 80 MG BID
  10. ARIPIPRAZOLE [Concomitant]
     Dosage: 10 MG BID
  11. ZOLPIDEM [Concomitant]
     Dosage: 10 MG QD
  12. BENZTROPINE MESYLATE [Concomitant]
     Dosage: 0.5 MG BID
  13. BENZTROPINE MESYLATE [Concomitant]
     Dosage: 0.5 MG QD
  14. FISH OIL [Concomitant]
     Dosage: 1000 MG BID

REACTIONS (7)
  - DEPRESSION SUICIDAL [None]
  - DRUG INTERACTION [None]
  - ELECTROCARDIOGRAM QT PROLONGED [None]
  - GALACTORRHOEA [None]
  - TIC [None]
  - URINARY RETENTION [None]
  - WEIGHT INCREASED [None]
